FAERS Safety Report 8193925 (Version 4)
Quarter: 2012Q4

REPORT INFORMATION
  Report Type: Report from Study
  Country: TW (occurrence: TW)
  Receive Date: 20111021
  Receipt Date: 20121221
  Transmission Date: 20130627
  Serious: Yes (Other)
  Sender: FDA-Public Use
  Company Number: PHHY2011TW92108

PATIENT
  Age: 60 Year
  Sex: Female
  Weight: 82 kg

DRUGS (2)
  1. ZOLEDRONATE [Suspect]
     Indication: METASTASES TO BONE
     Dosage: 4 mg every 4 weeks
     Route: 042
     Dates: start: 20100208, end: 20110905
  2. LETROZOLE [Concomitant]
     Indication: BREAST CANCER
     Dosage: 2.5 mg per day
     Dates: start: 20101221

REACTIONS (11)
  - Osteonecrosis of jaw [Unknown]
  - Osteomyelitis [Not Recovered/Not Resolved]
  - Cellulitis [Not Recovered/Not Resolved]
  - Abscess oral [Not Recovered/Not Resolved]
  - Oral pain [Not Recovered/Not Resolved]
  - Purulent discharge [Not Recovered/Not Resolved]
  - Bone density increased [Not Recovered/Not Resolved]
  - Primary sequestrum [Not Recovered/Not Resolved]
  - Gingival infection [Not Recovered/Not Resolved]
  - Exposed bone in jaw [Unknown]
  - Pain [Unknown]
